FAERS Safety Report 24578188 (Version 1)
Quarter: 2024Q4

REPORT INFORMATION
  Report Type: Spontaneous
  Country: BR (occurrence: BR)
  Receive Date: 20241104
  Receipt Date: 20241104
  Transmission Date: 20250114
  Serious: Yes (Other)
  Sender: ABBVIE
  Company Number: BR-ABBOTT-2024A-1390736

PATIENT
  Age: 11 Year
  Sex: Male

DRUGS (1)
  1. DEPAKOTE ER [Suspect]
     Active Substance: DIVALPROEX SODIUM
     Indication: Nervous system disorder
     Dosage: TAKING DEPAKOTE ER 250 MG DAILY FOR SOME TIME NOW
     Route: 048

REACTIONS (3)
  - Product residue present [Unknown]
  - Product quality issue [Unknown]
  - Drug ineffective [Unknown]
